FAERS Safety Report 25956966 (Version 1)
Quarter: 2025Q4

REPORT INFORMATION
  Report Type: Spontaneous
  Country: EU (occurrence: EU)
  Receive Date: 20251024
  Receipt Date: 20251024
  Transmission Date: 20260117
  Serious: Yes (Congenital Anomaly)
  Sender: EMD SERONO INC
  Company Number: EU-Merck Healthcare KGaA-2025052809

PATIENT
  Sex: Male

DRUGS (2)
  1. MAVENCLAD [Suspect]
     Active Substance: CLADRIBINE
     Indication: Multiple sclerosis
     Dosage: FIRST CYCLE THERAPY. PRODUCT RECEIVED BY BABY^S MOTHER
  2. MAVENCLAD [Suspect]
     Active Substance: CLADRIBINE
     Dosage: SECOND CYCLE THERAPY

REACTIONS (1)
  - Haemangioma congenital [Unknown]
